FAERS Safety Report 8940078 (Version 2)
Quarter: 2013Q1

REPORT INFORMATION
  Report Type: Spontaneous
  Country: US (occurrence: US)
  Receive Date: 20121203
  Receipt Date: 20130220
  Transmission Date: 20140127
  Serious: Yes (Hospitalization, Other)
  Sender: FDA-Public Use
  Company Number: US-JNJFOC-20121114278

PATIENT
  Sex: Female

DRUGS (1)
  1. EXTRA STRENGTH TYLENOL RAPID RELEASE [Suspect]
     Indication: PRODUCT USED FOR UNKNOWN INDICATION
     Route: 048
     Dates: start: 20121121

REACTIONS (4)
  - Dehydration [Unknown]
  - Vomiting [Unknown]
  - Product quality issue [Unknown]
  - Expired drug administered [Unknown]
